FAERS Safety Report 14267983 (Version 1)
Quarter: 2017Q4

REPORT INFORMATION
  Report Type: Spontaneous
  Country: US (occurrence: US)
  Receive Date: 20171211
  Receipt Date: 20171211
  Transmission Date: 20180321
  Serious: No
  Sender: FDA-Public Use
  Company Number: US-BAYER-2017-237629

PATIENT
  Age: 75 Year
  Sex: Female

DRUGS (1)
  1. ALEVE [Suspect]
     Active Substance: NAPROXEN SODIUM
     Indication: PAIN
     Dosage: 2 DF, BID
     Route: 048
     Dates: start: 201711

REACTIONS (4)
  - Product use issue [Unknown]
  - Abdominal discomfort [Not Recovered/Not Resolved]
  - Eructation [Unknown]
  - Off label use [Unknown]

NARRATIVE: CASE EVENT DATE: 201711
